FAERS Safety Report 8997359 (Version 2)
Quarter: 2013Q2

REPORT INFORMATION
  Report Type: Report from Study
  Country: JP (occurrence: JP)
  Receive Date: 20130104
  Receipt Date: 20130606
  Transmission Date: 20140414
  Serious: Yes (Hospitalization, Other)
  Sender: FDA-Public Use
  Company Number: JP-ASTELLAS-2013US000098

PATIENT
  Age: 62 Year
  Sex: Female
  Weight: 44 kg

DRUGS (21)
  1. ERLOTINIB TABLET [Suspect]
     Indication: PANCREATIC CARCINOMA
     Dosage: 100 MG, UID/QD
     Route: 048
     Dates: start: 20120807
  2. ERLOTINIB TABLET [Suspect]
     Dosage: 100 MG, UID/QD
     Route: 048
     Dates: start: 20121130, end: 20130112
  3. GEMCITABINE HYDROCHLORIDE [Suspect]
     Indication: PANCREATIC CARCINOMA
     Dosage: 1000 MG/KG, UID/QD
     Route: 041
     Dates: start: 20120807
  4. GEMCITABINE HYDROCHLORIDE [Suspect]
     Dosage: 1000 MG/KG, UID/QD
     Route: 041
     Dates: start: 20120814
  5. GEMCITABINE HYDROCHLORIDE [Suspect]
     Dosage: 1000 MG/KG, UID/QD
     Route: 041
     Dates: start: 20120821
  6. GEMCITABINE HYDROCHLORIDE [Suspect]
     Dosage: 1000 MG/KG, UID/QD
     Route: 041
     Dates: start: 20120907
  7. GEMCITABINE HYDROCHLORIDE [Suspect]
     Dosage: 1000 MG/KG, UID/QD
     Route: 041
     Dates: start: 20120919
  8. GEMCITABINE HYDROCHLORIDE [Suspect]
     Dosage: 1000 MG/KG, UID/QD
     Route: 041
     Dates: start: 20120928
  9. GEMCITABINE HYDROCHLORIDE [Suspect]
     Dosage: 1000 MG/KG, UID/QD
     Route: 041
     Dates: start: 20121005
  10. GEMCITABINE HYDROCHLORIDE [Suspect]
     Dosage: 1000 MG/KG, UID/QD
     Route: 041
     Dates: start: 20121019
  11. GEMCITABINE HYDROCHLORIDE [Suspect]
     Dosage: 1000 MG/KG, UID/QD
     Route: 041
     Dates: start: 20121026
  12. GEMCITABINE HYDROCHLORIDE [Suspect]
     Dosage: 1000 MG/KG, UID/QD
     Route: 041
     Dates: start: 20121109
  13. GEMCITABINE HYDROCHLORIDE [Suspect]
     Dosage: 1000 MG/KG, UID/QD
     Route: 041
     Dates: start: 20121116
  14. GEMCITABINE HYDROCHLORIDE [Suspect]
     Dosage: 1000 MG/KG, UID/QD
     Route: 041
     Dates: start: 20121130
  15. GEMCITABINE HYDROCHLORIDE [Suspect]
     Dosage: 1000 MG/KG, UID/QD
     Route: 041
     Dates: start: 20121207
  16. GEMCITABINE HYDROCHLORIDE [Suspect]
     Dosage: 1000 MG/KG, UID/QD
     Route: 041
     Dates: start: 20121214
  17. GEMCITABINE HYDROCHLORIDE [Suspect]
     Dosage: 1000 MG/KG, UID/QD
     Route: 041
     Dates: start: 20121228
  18. GEMCITABINE HYDROCHLORIDE [Suspect]
     Dosage: 1000 MG/KG, UID/QD
     Route: 041
     Dates: start: 20130111
  19. GEMCITABINE HYDROCHLORIDE [Suspect]
     Dosage: 1000 MG/KG, UID/QD
     Route: 041
     Dates: start: 20130125
  20. PRIMPERAN [Concomitant]
     Indication: PROPHYLAXIS
     Dosage: 24 MG, TOTAL DOSE
     Route: 048
     Dates: start: 20120810, end: 20120810
  21. URSO                               /00465701/ [Concomitant]
     Indication: PROPHYLAXIS
     Dosage: 300 MG, UID/QD
     Route: 048
     Dates: start: 20120914

REACTIONS (4)
  - Malignant neoplasm progression [Unknown]
  - Dermatitis acneiform [Recovered/Resolved]
  - Cholangitis [Recovered/Resolved]
  - Biliary tract infection [Recovered/Resolved]
